FAERS Safety Report 6095832-0 (Version None)
Quarter: 2009Q1

REPORT INFORMATION
  Report Type: 
  Country: None (occurrence: None)
  Receive Date: 20090227
  Receipt Date: 20080703
  Transmission Date: 20090719
  Serious: No
  Sender: FDA-Public Use
  Company Number: A0734546A

PATIENT
  Age: 15 Year
  Sex: Female

DRUGS (4)
  1. LAMICTAL [Suspect]
     Indication: BIPOLAR DISORDER
     Dosage: 100MG PER DAY
     Route: 048
     Dates: start: 20080403, end: 20080529
  2. ANTIBIOTIC [Suspect]
  3. ADDERALL XR 20 [Concomitant]
  4. LEXAPRO [Concomitant]

REACTIONS (2)
  - DRUG INTERACTION [None]
  - RASH [None]
